FAERS Safety Report 24078476 (Version 1)
Quarter: 2024Q3

REPORT INFORMATION
  Report Type: Report from Study
  Country: US (occurrence: US)
  Receive Date: 20240711
  Receipt Date: 20240711
  Transmission Date: 20241017
  Serious: Yes (Hospitalization)
  Sender: MYLAN
  Company Number: US-MYLANLABS-2024M1064090

PATIENT

DRUGS (1)
  1. PAMIDRONATE [Suspect]
     Active Substance: PAMIDRONATE DISODIUM
     Indication: Bone density decreased
     Dosage: 1 MILLIGRAM/KILOGRAM, QD
     Route: 042

REACTIONS (2)
  - Bone disorder [Recovered/Resolved]
  - Off label use [Unknown]
